FAERS Safety Report 5388605-5 (Version None)
Quarter: 2007Q3

REPORT INFORMATION
  Report Type: 
  Country: None (occurrence: None)
  Receive Date: 20070712
  Receipt Date: 20070629
  Transmission Date: 20080115
  Serious: Yes (Hospitalization)
  Sender: FDA-Public Use
  Company Number: S07-CZE-02734-01

PATIENT
  Age: 74 Year
  Sex: Female
  Weight: 75 kg

DRUGS (4)
  1. CIPRALEX (ESCITALOPRAM) [Suspect]
     Indication: PANIC DISORDER
     Dosage: 10 MG QD PO
     Route: 048
     Dates: start: 20070306
  2. MONOTAB (ISOSORIBIDE MONONITRATE) (ISOSORBIDE MONONITRATE) [Concomitant]
  3. SIMCALMED (SIMVASTATIN) (SIMVASTATIN) [Concomitant]
  4. TENAXUM (RILMENIDINE) [Concomitant]

REACTIONS (1)
  - ANGINA PECTORIS [None]
